FAERS Safety Report 7231035-1 (Version None)
Quarter: 2011Q1

REPORT INFORMATION
  Report Type: 
  Country: None (occurrence: None)
  Receive Date: 20110118
  Receipt Date: 20110105
  Transmission Date: 20110831
  Serious: Yes (Hospitalization)
  Sender: FDA-Public Use
  Company Number: ZA-ELI_LILLY_AND_COMPANY-ZA201101001365

PATIENT
  Sex: Male
  Weight: 35 kg

DRUGS (2)
  1. STRATTERA [Suspect]
     Indication: ATTENTION DEFICIT/HYPERACTIVITY DISORDER
     Dosage: 40 MG, DAILY (1/D)
     Route: 048
     Dates: start: 20100601, end: 20100801
  2. STRATTERA [Suspect]
     Dosage: 60 MG, UNK
     Route: 048
     Dates: start: 20100801, end: 20100901

REACTIONS (2)
  - EPISTAXIS [None]
  - PSYCHOMOTOR HYPERACTIVITY [None]
